FAERS Safety Report 22100665 (Version 3)
Quarter: 2024Q3

REPORT INFORMATION
  Report Type: Report from Study
  Country: US (occurrence: US)
  Receive Date: 20230316
  Receipt Date: 20240807
  Transmission Date: 20241017
  Serious: No
  Sender: NOVARTIS
  Company Number: US-002147023-NVSC2023US057691

PATIENT
  Age: 77 Year
  Sex: Male

DRUGS (5)
  1. ENTRESTO [Suspect]
     Active Substance: SACUBITRIL\VALSARTAN
     Indication: Ejection fraction decreased
     Dosage: 100 MG (49/51 MG), BID
     Route: 065
     Dates: start: 202202
  2. ENTRESTO [Suspect]
     Active Substance: SACUBITRIL\VALSARTAN
     Dosage: 50 MG (24/26 MG), BID
     Route: 065
     Dates: start: 20220310
  3. ENTRESTO [Suspect]
     Active Substance: SACUBITRIL\VALSARTAN
     Dosage: 200 MG (97/103 MG), QD
     Route: 065
     Dates: start: 20230209
  4. ENTRESTO [Suspect]
     Active Substance: SACUBITRIL\VALSARTAN
     Dosage: 100 MG (49/51 MG), QD
     Route: 065
     Dates: start: 20230304
  5. ENTRESTO [Suspect]
     Active Substance: SACUBITRIL\VALSARTAN
     Dosage: 49.51 MG (97.103), QD
     Route: 048

REACTIONS (8)
  - Fatigue [Unknown]
  - Agitation [Unknown]
  - Brain fog [Unknown]
  - Cough [Unknown]
  - Dizziness [Unknown]
  - Off label use [Unknown]
  - Wrong technique in product usage process [Unknown]
  - Disorientation [Unknown]

NARRATIVE: CASE EVENT DATE: 20230209
